FAERS Safety Report 4819762-4 (Version None)
Quarter: 2005Q4

REPORT INFORMATION
  Report Type: 
  Country: None (occurrence: None)
  Receive Date: 20051102
  Receipt Date: 20051021
  Transmission Date: 20060501
  Serious: Yes (Hospitalization, Other)
  Sender: FDA-Public Use
  Company Number: 2005146144

PATIENT
  Sex: Female
  Weight: 81.6475 kg

DRUGS (8)
  1. CELEBREX [Suspect]
     Indication: ILL-DEFINED DISORDER
  2. VERAPAMIL [Concomitant]
  3. XANAX [Concomitant]
  4. ALL OTHER THERAPEUTIC PRODUCTS (ALL OTHER THERAPEUTIC PRODUCTS) [Concomitant]
  5. ACETYLSALIYCLIC ACID (ACETYLSALICYLIC ACID) [Concomitant]
  6. ZESTRIL [Concomitant]
  7. HYDROCHLOROTHIAZIDE [Concomitant]
  8. INDERAL (PROPRANAOLOL HYDROCHLORIDE) [Concomitant]

REACTIONS (3)
  - GLUCOSE TOLERANCE IMPAIRED [None]
  - INADEQUATE DIET [None]
  - POLYMYALGIA RHEUMATICA [None]
